FAERS Safety Report 7411701-5 (Version None)
Quarter: 2011Q2

REPORT INFORMATION
  Report Type: 
  Country: None (occurrence: None)
  Receive Date: 20110413
  Receipt Date: 20101118
  Transmission Date: 20111010
  Serious: Yes (Other)
  Sender: FDA-Public Use
  Company Number: US-BRISTOL-MYERS SQUIBB COMPANY-15385651

PATIENT
  Age: 8 Decade
  Sex: Male

DRUGS (1)
  1. ERBITUX [Suspect]
     Dosage: NO OF INF:4 OF 5 INTERRUPTED FOR A WEEK
     Dates: end: 20100728

REACTIONS (3)
  - NEOPLASM MALIGNANT [None]
  - RASH [None]
  - SCAB [None]
